FAERS Safety Report 7528506-7 (Version None)
Quarter: 2011Q2

REPORT INFORMATION
  Report Type: 
  Country: None (occurrence: None)
  Receive Date: 20110607
  Receipt Date: 20110106
  Transmission Date: 20111010
  Serious: No
  Sender: FDA-Public Use
  Company Number: US-ASTRAZENECA-2011SE03262

PATIENT
  Sex: Male

DRUGS (3)
  1. PRILOSEC OTC [Suspect]
     Route: 048
     Dates: start: 20110102, end: 20110105
  2. ATENOLOL [Concomitant]
     Dosage: UNKNOWN.
  3. LISINOPRIL [Concomitant]
     Dosage: UNKNOWN.

REACTIONS (1)
  - BLOOD PRESSURE INCREASED [None]
